FAERS Safety Report 5684049-7 (Version None)
Quarter: 2008Q1

REPORT INFORMATION
  Report Type: 
  Country: None (occurrence: None)
  Receive Date: 20080328
  Receipt Date: 20080320
  Transmission Date: 20080703
  Serious: Yes (Other)
  Sender: FDA-Public Use
  Company Number: FI-JNJFOC-20080305063

PATIENT
  Sex: Female

DRUGS (17)
  1. REMICADE [Suspect]
     Route: 042
  2. REMICADE [Suspect]
     Route: 042
  3. REMICADE [Suspect]
     Route: 042
  4. REMICADE [Suspect]
     Route: 042
  5. REMICADE [Suspect]
     Route: 042
  6. REMICADE [Suspect]
     Route: 042
  7. REMICADE [Suspect]
     Route: 042
  8. REMICADE [Suspect]
     Route: 042
  9. REMICADE [Suspect]
     Route: 042
  10. REMICADE [Suspect]
     Route: 042
  11. REMICADE [Suspect]
     Route: 042
  12. REMICADE [Suspect]
     Indication: CROHN'S DISEASE
     Route: 042
  13. IMUREL [Concomitant]
     Route: 048
  14. IMUREL [Concomitant]
     Indication: CROHN'S DISEASE
     Route: 048
  15. CIPROXIN [Concomitant]
     Indication: CROHN'S DISEASE
     Dosage: 250 MG - 500 MG/DAY
     Route: 048
  16. TRIKOZOL [Concomitant]
     Indication: CROHN'S DISEASE
     Route: 048
  17. SOLU-MEDROL [Concomitant]
     Indication: PROPHYLAXIS
     Dosage: EXCEPT FOR FIRST INFUSION
     Route: 042

REACTIONS (1)
  - DYSPLASIA [None]
